FAERS Safety Report 5992837-2 (Version None)
Quarter: 2008Q4

REPORT INFORMATION
  Report Type: 
  Country: None (occurrence: None)
  Receive Date: 20081209
  Receipt Date: 20080904
  Transmission Date: 20090506
  Serious: Yes (Hospitalization)
  Sender: FDA-Public Use
  Company Number: 002#2#2008-00577

PATIENT
  Age: 72 Year
  Sex: Male
  Weight: 106.5953 kg

DRUGS (8)
  1. NEUPRO [Suspect]
     Indication: PARKINSON'S DISEASE
     Dosage: 4MG/24H,1 IN 1 D,TRANSDERMAL
     Route: 062
     Dates: start: 20080501, end: 20080601
  2. STALEVO 100 [Concomitant]
  3. MIRAPRESS [Concomitant]
  4. DOXAZOSIN MESYLATE [Concomitant]
  5. MIRAPEX [Concomitant]
  6. FUROSEMIDE [Concomitant]
  7. GABAPENTIN [Concomitant]
  8. CYMBALTA [Concomitant]

REACTIONS (4)
  - APPLICATION SITE ERYTHEMA [None]
  - CARDIAC FAILURE [None]
  - ERYTHEMA [None]
  - RASH [None]
